FAERS Safety Report 6208229-7 (Version None)
Quarter: 2009Q2

REPORT INFORMATION
  Report Type: 
  Country: None (occurrence: None)
  Receive Date: 20090529
  Receipt Date: 20090518
  Transmission Date: 20091009
  Serious: Yes (Death)
  Sender: FDA-Public Use
  Company Number: JP-BAYER-200910752BYL

PATIENT
  Age: 68 Year
  Sex: Male
  Weight: 46 kg

DRUGS (15)
  1. FLUDARA [Suspect]
     Indication: ACUTE MYELOID LEUKAEMIA
     Dosage: AS USED: 30 MG/M2  UNIT DOSE: 50 MG
     Route: 042
     Dates: start: 20081119, end: 20081121
  2. FLUDARA [Suspect]
     Dosage: AS USED: 25 MG/M2  UNIT DOSE: 50 MG
     Route: 042
     Dates: start: 20081216, end: 20081220
  3. MELPHALAN [Concomitant]
     Indication: ACUTE MYELOID LEUKAEMIA
     Dosage: AS USED: 40 MG/M2
     Route: 042
     Dates: start: 20081119, end: 20081121
  4. MELPHALAN [Concomitant]
     Dosage: AS USED: 40 MG/M2
     Route: 042
     Dates: start: 20081216, end: 20081217
  5. BUSULFAN [Concomitant]
     Indication: CORD BLOOD TRANSPLANT THERAPY
     Dosage: TOTAL DAILY DOSE: 3.2 MG/KG
     Route: 042
     Dates: start: 20081119, end: 20081121
  6. PROGRAF [Concomitant]
     Route: 042
     Dates: start: 20081221, end: 20081224
  7. CELLCEPT [Concomitant]
     Dosage: TOTAL DAILY DOSE: 4000 MG
     Route: 048
     Dates: start: 20081226, end: 20081226
  8. CELLCEPT [Concomitant]
     Dosage: TOTAL DAILY DOSE: 2000 MG
     Route: 048
     Dates: start: 20081227, end: 20081230
  9. CONCENTRATED RED CELLS [Concomitant]
     Indication: PACKED RED BLOOD CELL TRANSFUSION
     Route: 042
     Dates: start: 20081217, end: 20081226
  10. PLATELETS [Concomitant]
     Indication: PLATELET TRANSFUSION
     Route: 042
     Dates: start: 20081217, end: 20081229
  11. MEROPENEM [Concomitant]
     Indication: PNEUMONIA
  12. AMPHOTERICIN B [Concomitant]
     Indication: PNEUMONIA
  13. CEFTAZIDIME [Concomitant]
     Indication: PNEUMONIA
  14. OZEX [Concomitant]
     Indication: PNEUMONIA
  15. VANCOMYCIN [Concomitant]
     Indication: PNEUMONIA

REACTIONS (2)
  - PNEUMONIA [None]
  - RENAL FAILURE [None]
